FAERS Safety Report 25297339 (Version 2)
Quarter: 2025Q2

REPORT INFORMATION
  Report Type: Spontaneous
  Country: US (occurrence: US)
  Receive Date: 20250511
  Receipt Date: 20250625
  Transmission Date: 20250716
  Serious: No
  Sender: TOLMAR
  Company Number: US-Tolmar-TLM-2025-00801

PATIENT
  Sex: Male

DRUGS (1)
  1. JATENZO [Suspect]
     Active Substance: TESTOSTERONE UNDECANOATE
     Indication: Blood testosterone decreased
     Dosage: EXPIRATION DATE: 30-NOV-2026; UNK; UNK?SN NUMBER: 108818798081, ?GTIN NUMBER: 00369087237120 ?NDC NU

REACTIONS (2)
  - Intentional underdose [Unknown]
  - Product packaging quantity issue [Unknown]
